FAERS Safety Report 9133690 (Version 1)
Quarter: 2013Q1

REPORT INFORMATION
  Report Type: Spontaneous
  Country: GR (occurrence: GR)
  Receive Date: 20130302
  Receipt Date: 20130302
  Transmission Date: 20140127
  Serious: Yes (Death, Hospitalization)
  Sender: FDA-Public Use
  Company Number: PHHY2013GR020028

PATIENT
  Age: 70 Year
  Sex: Female

DRUGS (3)
  1. CICLOSPORIN [Suspect]
     Indication: NEPHROTIC SYNDROME
  2. CORTICOSTEROIDS [Concomitant]
     Route: 048
  3. HEPARIN [Concomitant]

REACTIONS (7)
  - Shock haemorrhagic [Fatal]
  - Intra-abdominal haematoma [Fatal]
  - Abdominal pain [Fatal]
  - Abdominal wall mass [Fatal]
  - Blood pressure decreased [Fatal]
  - Haemoglobin decreased [Fatal]
  - Haemorrhage [Fatal]
